FAERS Safety Report 15405859 (Version 1)
Quarter: 2018Q3

REPORT INFORMATION
  Report Type: Spontaneous
  Country: US (occurrence: US)
  Receive Date: 20180918
  Receipt Date: 20180918
  Transmission Date: 20181010
  Serious: Yes (Other)
  Sender: FDA-Public Use
  Company Number: None

PATIENT
  Age: 67 Year
  Sex: Female
  Weight: 58.5 kg

DRUGS (8)
  1. ERYTHROMYCIN. [Suspect]
     Active Substance: ERYTHROMYCIN
     Indication: PROPHYLAXIS
     Dosage: ?          QUANTITY:.25 1/4 INCH PER EYE;?
     Route: 047
     Dates: start: 20180115, end: 20180201
  2. W COQ10 [Concomitant]
  3. ERYTHROMYCIN. [Suspect]
     Active Substance: ERYTHROMYCIN
     Indication: HERPES ZOSTER
     Dosage: ?          QUANTITY:.25 1/4 INCH PER EYE;?
     Route: 047
     Dates: start: 20180115, end: 20180201
  4. VITAMINS + MINERALS [Concomitant]
  5. PREGNENELONE [Concomitant]
  6. ERRAPEPTASE [Concomitant]
  7. DHEA [Concomitant]
     Active Substance: PRASTERONE
  8. PQQ [Concomitant]

REACTIONS (4)
  - Product contamination physical [None]
  - Instillation site pain [None]
  - Foreign body in eye [None]
  - Packaging design issue [None]

NARRATIVE: CASE EVENT DATE: 20180115
